FAERS Safety Report 8534628 (Version 7)
Quarter: 2013Q2

REPORT INFORMATION
  Report Type: Spontaneous
  Country: US (occurrence: US)
  Receive Date: 20120427
  Receipt Date: 20130618
  Transmission Date: 20140414
  Serious: Yes (Hospitalization, Other)
  Sender: FDA-Public Use
  Company Number: US-009507513-1202USA00049

PATIENT
  Sex: Female
  Weight: 67.59 kg

DRUGS (7)
  1. FOSAMAX PLUS D [Suspect]
     Indication: OSTEOPENIA
     Dosage: UNK MG, QW
     Route: 048
     Dates: start: 2005, end: 2010
  2. FOSAMAX [Suspect]
     Indication: OSTEOPENIA
     Dosage: 70 MG, QW
     Route: 048
     Dates: start: 20060224, end: 20060831
  3. FOSAMAX [Suspect]
     Dosage: 70 MG, QW
     Route: 048
     Dates: start: 20070614, end: 20070904
  4. FOSAMAX [Suspect]
     Indication: OSTEOPENIA
     Dosage: 70 MG, UNK
     Route: 048
     Dates: start: 20090305, end: 20090626
  5. SYNTHROID [Concomitant]
     Indication: THYROID DISORDER
     Dates: start: 199502
  6. CALCIUM (UNSPECIFIED) [Concomitant]
     Indication: OSTEOPENIA
     Dosage: 1500 MG, QD
  7. VITAMIN D (UNSPECIFIED) [Concomitant]
     Indication: OSTEOPENIA
     Dosage: 800 IU, QD

REACTIONS (58)
  - Femoral neck fracture [Unknown]
  - Hip fracture [Unknown]
  - Major depression [Not Recovered/Not Resolved]
  - Gastrointestinal disorder [Unknown]
  - Uterine disorder [Unknown]
  - Postoperative adhesion [Unknown]
  - Hypokalaemia [Unknown]
  - Depression suicidal [Recovered/Resolved]
  - Psychotic disorder [Not Recovered/Not Resolved]
  - Fall [Unknown]
  - Dehydration [Unknown]
  - Internal hernia [Recovering/Resolving]
  - Infection [Unknown]
  - Depression [Recovered/Resolved]
  - Leukocytosis [Unknown]
  - Intestinal resection [Unknown]
  - Hypophosphataemia [Unknown]
  - Tooth disorder [Unknown]
  - Anaemia [Unknown]
  - Hypertension [Unknown]
  - Fall [Unknown]
  - Blood creatine phosphokinase increased [Unknown]
  - Infection [Unknown]
  - Psoriasis [Unknown]
  - Autoimmune thyroiditis [Unknown]
  - Dyslipidaemia [Unknown]
  - Trigger finger [Unknown]
  - Pollakiuria [Unknown]
  - Kyphosis [Unknown]
  - Spinal osteoarthritis [Unknown]
  - Spinal osteoarthritis [Unknown]
  - Joint contracture [Unknown]
  - Contusion [Unknown]
  - Tenosynovitis stenosans [Unknown]
  - Breast calcifications [Unknown]
  - Hypothyroidism [Unknown]
  - Dermatitis allergic [Unknown]
  - Adverse drug reaction [Unknown]
  - Rheumatoid arthritis [Unknown]
  - Atelectasis [Unknown]
  - Tachycardia [Unknown]
  - Allergic sinusitis [Unknown]
  - Small intestinal obstruction [Unknown]
  - Major depression [Recovering/Resolving]
  - Weight increased [Unknown]
  - Fluid retention [Unknown]
  - Cataract [Unknown]
  - Gastric dilatation [Unknown]
  - Fallopian tube disorder [Unknown]
  - Fatigue [Unknown]
  - Anaemia [Unknown]
  - Dyspnoea exertional [Unknown]
  - Hypovitaminosis [Unknown]
  - Myocardial ischaemia [Unknown]
  - Bacterial test [Unknown]
  - Blood pressure increased [Unknown]
  - Tachycardia [Unknown]
  - Myalgia [Not Recovered/Not Resolved]
